FAERS Safety Report 6963962 (Version 4)
Quarter: 2015Q2

REPORT INFORMATION
  Report Type: Spontaneous
  Country: US (occurrence: US)
  Receive Date: 20090408
  Receipt Date: 20150522
  Transmission Date: 20150821
  Serious: Yes (Hospitalization, Other)
  Sender: FDA-Public Use
  Company Number: US-ASTRAZENECA-2009UW08145

PATIENT
  Age: 69 Year
  Sex: Female
  Weight: 65.8 kg

DRUGS (16)
  1. ARIMIDEX [Suspect]
     Active Substance: ANASTROZOLE
     Indication: BREAST CANCER
     Route: 048
     Dates: start: 20090212, end: 201002
  2. ARIMIDEX [Suspect]
     Active Substance: ANASTROZOLE
     Indication: PRODUCT USED FOR UNKNOWN INDICATION
     Dosage: GENERIC, 1 MG ONCE
     Route: 048
     Dates: start: 201002
  3. ARIMIDEX [Suspect]
     Active Substance: ANASTROZOLE
     Indication: BREAST CANCER
     Route: 048
  4. LOSARTAN AND HYDROCHLOROTHIAZIDE [Concomitant]
     Active Substance: HYDROCHLOROTHIAZIDE\LOSARTAN POTASSIUM
     Indication: BLOOD PRESSURE ABNORMAL
     Dosage: 50/12.5 MG DAILY
     Route: 048
     Dates: start: 2009
  5. SERTRALINE [Concomitant]
     Active Substance: SERTRALINE HYDROCHLORIDE
     Indication: ANXIETY
  6. ARIMIDEX [Suspect]
     Active Substance: ANASTROZOLE
     Indication: PRODUCT USED FOR UNKNOWN INDICATION
     Route: 048
     Dates: start: 20090212, end: 201002
  7. ARIMIDEX [Suspect]
     Active Substance: ANASTROZOLE
     Indication: BREAST CANCER
     Dosage: GENERIC, 1 MG ONCE
     Route: 048
     Dates: start: 201002
  8. CIPRO [Suspect]
     Active Substance: CIPROFLOXACIN HYDROCHLORIDE
     Route: 042
  9. BABY ASA [Concomitant]
     Active Substance: ASPIRIN
  10. CRESTOR [Suspect]
     Active Substance: ROSUVASTATIN CALCIUM
     Indication: BLOOD CHOLESTEROL INCREASED
     Dosage: DAILY
     Route: 048
  11. BABY ASA [Concomitant]
     Active Substance: ASPIRIN
     Dosage: DAILY
     Route: 048
  12. ARIMIDEX [Suspect]
     Active Substance: ANASTROZOLE
     Indication: INTRADUCTAL PROLIFERATIVE BREAST LESION
     Route: 048
  13. ARIMIDEX [Suspect]
     Active Substance: ANASTROZOLE
     Indication: PRODUCT USED FOR UNKNOWN INDICATION
     Route: 048
  14. DIOVAN [Concomitant]
     Active Substance: VALSARTAN
     Dosage: DAILY
     Route: 048
  15. ARIMIDEX [Suspect]
     Active Substance: ANASTROZOLE
     Indication: INTRADUCTAL PROLIFERATIVE BREAST LESION
     Dosage: GENERIC, 1 MG ONCE
     Route: 048
     Dates: start: 201002
  16. ARIMIDEX [Suspect]
     Active Substance: ANASTROZOLE
     Indication: INTRADUCTAL PROLIFERATIVE BREAST LESION
     Route: 048
     Dates: start: 20090212, end: 201002

REACTIONS (20)
  - Breast pain [Unknown]
  - Cervical spinal stenosis [Unknown]
  - Oophoritis [Unknown]
  - Dysphagia [Not Recovered/Not Resolved]
  - Ocular vasculitis [Not Recovered/Not Resolved]
  - Dyspnoea exertional [Not Recovered/Not Resolved]
  - Fluid retention [Not Recovered/Not Resolved]
  - Weight increased [Unknown]
  - Fatigue [Not Recovered/Not Resolved]
  - Chest pain [Not Recovered/Not Resolved]
  - Libido increased [Unknown]
  - Hyperreflexia [Unknown]
  - Sensory disturbance [Unknown]
  - Neuropathy peripheral [Unknown]
  - Abdominal infection [Unknown]
  - Uterine leiomyoma [Not Recovered/Not Resolved]
  - Infection [Recovered/Resolved]
  - Hormone level abnormal [Recovered/Resolved]
  - Diverticulitis [Recovered/Resolved]
  - Angina pectoris [Not Recovered/Not Resolved]

NARRATIVE: CASE EVENT DATE: 2009
